FAERS Safety Report 9536675 (Version 1)
Quarter: 2013Q3

REPORT INFORMATION
  Report Type: Spontaneous
  Country: FR (occurrence: FR)
  Receive Date: 20130919
  Receipt Date: 20130919
  Transmission Date: 20140515
  Serious: Yes (Hospitalization)
  Sender: FDA-Public Use
  Company Number: FR-B.I. PHARMACEUTICALS,INC./RIDGEFIELD-2013-FF-02283FF

PATIENT
  Age: 55 Year
  Sex: Female

DRUGS (1)
  1. ASASANTIN [Suspect]
     Indication: TRANSIENT ISCHAEMIC ATTACK
     Dosage: 200MG/25MG * 2 DAILY
     Route: 048
     Dates: start: 20130702, end: 20130728

REACTIONS (4)
  - Drug level decreased [Recovered/Resolved]
  - Transient ischaemic attack [Recovered/Resolved]
  - Deep vein thrombosis [Not Recovered/Not Resolved]
  - Pulmonary embolism [Not Recovered/Not Resolved]
